FAERS Safety Report 9107027 (Version 1)
Quarter: 2013Q1

REPORT INFORMATION
  Report Type: Spontaneous
  Country: US (occurrence: US)
  Receive Date: 20130221
  Receipt Date: 20130221
  Transmission Date: 20140127
  Serious: Yes (Congenital Anomaly, Other)
  Sender: FDA-Public Use
  Company Number: US-PFIZER INC-2013063886

PATIENT
  Sex: Male

DRUGS (4)
  1. ZOLOFT [Suspect]
     Dosage: UNK
     Route: 064
     Dates: start: 1994
  2. ZOLOFT [Suspect]
     Dosage: UNK
     Route: 064
     Dates: start: 1996
  3. ZOLOFT [Suspect]
     Dosage: UNK
     Route: 064
     Dates: start: 1999, end: 2004
  4. PRENATAL VITAMINS [Concomitant]
     Dosage: UNK
     Route: 064

REACTIONS (2)
  - Maternal exposure during pregnancy [Unknown]
  - Transposition of the great vessels [Unknown]
